FAERS Safety Report 8416954-2 (Version None)
Quarter: 2012Q2

REPORT INFORMATION
  Report Type: 
  Country: None (occurrence: None)
  Receive Date: 20120606
  Receipt Date: 20120530
  Transmission Date: 20120825
  Serious: Yes (Other)
  Sender: FDA-Public Use
  Company Number: SE-PFIZER INC-2012129719

PATIENT
  Age: 26 Year
  Sex: Male

DRUGS (2)
  1. REFACTO [Suspect]
     Dosage: 3000 IU, UNK
  2. MORPHINE [Concomitant]
     Indication: PAIN
     Dosage: UNK

REACTIONS (8)
  - COLITIS ULCERATIVE [None]
  - DRUG INEFFECTIVE [None]
  - SOMNOLENCE [None]
  - INTESTINAL HAEMORRHAGE [None]
  - FATIGUE [None]
  - ABDOMINAL PAIN UPPER [None]
  - INTESTINAL PERFORATION [None]
  - ARTHRALGIA [None]
